FAERS Safety Report 6392215-0 (Version None)
Quarter: 2009Q4

REPORT INFORMATION
  Report Type: 
  Country: None (occurrence: None)
  Receive Date: 20091007
  Receipt Date: 20090930
  Transmission Date: 20100525
  Serious: Yes (Other)
  Sender: FDA-Public Use
  Company Number: DE-WYE-G04446309

PATIENT
  Sex: Male
  Weight: 77 kg

DRUGS (1)
  1. TORISEL [Suspect]
     Indication: RENAL CELL CARCINOMA
     Route: 042
     Dates: start: 20090818

REACTIONS (3)
  - APHTHOUS STOMATITIS [None]
  - SKIN EXFOLIATION [None]
  - SKIN NECROSIS [None]
